FAERS Safety Report 12326961 (Version 2)
Quarter: 2016Q2

REPORT INFORMATION
  Report Type: Spontaneous
  Country: JP (occurrence: JP)
  Receive Date: 20160503
  Receipt Date: 20160512
  Transmission Date: 20160815
  Serious: Yes (Death, Hospitalization)
  Sender: FDA-Public Use
  Company Number: JP-JNJFOC-20160426851

PATIENT
  Age: 68 Year
  Sex: Male

DRUGS (6)
  1. ZYTIGA [Suspect]
     Active Substance: ABIRATERONE ACETATE
     Indication: HORMONE-REFRACTORY PROSTATE CANCER
     Route: 048
     Dates: start: 20160324
  2. FAMOTIDINE. [Concomitant]
     Active Substance: FAMOTIDINE
     Route: 048
  3. AMLODIN [Concomitant]
     Active Substance: AMLODIPINE BESYLATE
     Route: 048
  4. MAGNESIUM OXIDE. [Concomitant]
     Active Substance: MAGNESIUM OXIDE
     Route: 048
  5. NAUZELIN [Concomitant]
     Active Substance: DOMPERIDONE
     Route: 048
  6. PREDONINE [Concomitant]
     Active Substance: PREDNISOLONE\PREDNISOLONE ACETATE\PREDNISOLONE SODIUM SUCCINATE
     Indication: HORMONE-REFRACTORY PROSTATE CANCER
     Route: 048

REACTIONS (3)
  - Anaemia [Unknown]
  - Pyrexia [Unknown]
  - Interstitial lung disease [Fatal]

NARRATIVE: CASE EVENT DATE: 20160421
